FAERS Safety Report 4749921-0 (Version None)
Quarter: 2005Q3

REPORT INFORMATION
  Report Type: 
  Country: None (occurrence: None)
  Receive Date: 20050822
  Receipt Date: 20050810
  Transmission Date: 20060218
  Serious: Yes (Other)
  Sender: FDA-Public Use
  Company Number: HQWYE847311AUG05

PATIENT
  Age: 54 Year
  Sex: Female

DRUGS (3)
  1. EFFEXOR XR [Suspect]
     Indication: ANXIETY
     Dosage: 37.5 MG 1X PER 1 DAY
     Route: 048
     Dates: start: 20050809, end: 20050809
  2. EFFEXOR XR [Suspect]
     Indication: DEPRESSION
     Dosage: 37.5 MG 1X PER 1 DAY
     Route: 048
     Dates: start: 20050809, end: 20050809
  3. ALTACE [Concomitant]

REACTIONS (6)
  - DIFFICULTY IN WALKING [None]
  - DYSPHAGIA [None]
  - EYELID OEDEMA [None]
  - HYPOAESTHESIA ORAL [None]
  - PHARYNGEAL HYPOAESTHESIA [None]
  - SWELLING FACE [None]
